FAERS Safety Report 17800621 (Version 1)
Quarter: 2020Q2

REPORT INFORMATION
  Report Type: Report from Study
  Country: CO (occurrence: CO)
  Receive Date: 20200518
  Receipt Date: 20200518
  Transmission Date: 20200714
  Serious: Yes (Hospitalization)
  Sender: FDA-Public Use
  Company Number: CO-ACTELION-A-US2020-205280

PATIENT
  Age: 0 Day

DRUGS (3)
  1. VENTAVIS [Suspect]
     Active Substance: ILOPROST
     Indication: MATERNAL EXPOSURE DURING PREGNANCY
     Dosage: 6 DF
     Route: 064
     Dates: start: 20191228, end: 20200502
  2. VENTAVIS [Suspect]
     Active Substance: ILOPROST
     Dosage: 6 DF
     Route: 064
     Dates: start: 20200507
  3. SILDENAFIL CITRATE. [Concomitant]
     Active Substance: SILDENAFIL CITRATE
     Dosage: UNK

REACTIONS (4)
  - Maternal exposure during pregnancy [Unknown]
  - Premature baby [Unknown]
  - Low birth weight baby [Unknown]
  - Live birth [Unknown]

NARRATIVE: CASE EVENT DATE: 20200430
